FAERS Safety Report 15393996 (Version 1)
Quarter: 2018Q3

REPORT INFORMATION
  Report Type: Spontaneous
  Country: US (occurrence: US)
  Receive Date: 20180917
  Receipt Date: 20180917
  Transmission Date: 20181010
  Serious: No
  Sender: FDA-Public Use
  Company Number: US-GLAXOSMITHKLINE-US2018GSK165032

PATIENT
  Sex: Female

DRUGS (2)
  1. NUCALA [Suspect]
     Active Substance: MEPOLIZUMAB
     Indication: ASTHMA
     Dosage: UNK, CYC
  2. NUCALA [Suspect]
     Active Substance: MEPOLIZUMAB
     Dosage: UNK, Z

REACTIONS (8)
  - Condition aggravated [Unknown]
  - Malaise [Unknown]
  - Rehabilitation therapy [Unknown]
  - Hypersensitivity [Recovered/Resolved]
  - Lethargy [Recovered/Resolved]
  - Asthma [Unknown]
  - Inappropriate schedule of drug administration [Unknown]
  - Product use issue [Unknown]
